FAERS Safety Report 21919634 (Version 2)
Quarter: 2023Q1

REPORT INFORMATION
  Report Type: Report from Study
  Country: DE (occurrence: DE)
  Receive Date: 20230127
  Receipt Date: 20230202
  Transmission Date: 20230418
  Serious: No
  Sender: FDA-Public Use
  Company Number: DE-MYLANLABS-2023M1008147

PATIENT
  Sex: Female

DRUGS (1)
  1. GLATIRAMER ACETATE [Suspect]
     Active Substance: GLATIRAMER ACETATE
     Indication: Multiple sclerosis
     Dosage: 20 MILLIGRAM PER MILLILITRE
     Route: 065
     Dates: start: 20221227, end: 20230117

REACTIONS (4)
  - Cardiovascular disorder [Unknown]
  - Depressed mood [Unknown]
  - Pain in extremity [Unknown]
  - Chills [Unknown]
